FAERS Safety Report 14406354 (Version 1)
Quarter: 2018Q1

REPORT INFORMATION
  Report Type: Spontaneous
  Country: CA (occurrence: CA)
  Receive Date: 20180118
  Receipt Date: 20180118
  Transmission Date: 20180509
  Serious: Yes (Hospitalization, Other)
  Sender: FDA-Public Use
  Company Number: CA-GLAXOSMITHKLINE-CA2018GSK006796

PATIENT
  Sex: Female

DRUGS (1)
  1. BREO ELLIPTA [Suspect]
     Active Substance: FLUTICASONE FUROATE\VILANTEROL TRIFENATATE
     Indication: PRODUCT USED FOR UNKNOWN INDICATION
     Dosage: UNK
     Dates: start: 2017

REACTIONS (11)
  - Tongue injury [Unknown]
  - Hyperhidrosis [Unknown]
  - Dizziness [Unknown]
  - Fungal infection [Unknown]
  - Pharyngeal mass [Unknown]
  - Feeding disorder [Unknown]
  - Migraine [Unknown]
  - Lung infection [Unknown]
  - Ill-defined disorder [Unknown]
  - Dysphagia [Unknown]
  - Malaise [Unknown]
